FAERS Safety Report 7728251-9 (Version None)
Quarter: 2011Q3

REPORT INFORMATION
  Report Type: 
  Country: None (occurrence: None)
  Receive Date: 20110905
  Receipt Date: 20110826
  Transmission Date: 20111222
  Serious: Yes (Other)
  Sender: FDA-Public Use
  Company Number: PHEH2009US02468

PATIENT
  Sex: Female

DRUGS (25)
  1. PROCRIT [Concomitant]
  2. ATENOLOL [Concomitant]
     Route: 048
  3. PERCOCET [Concomitant]
  4. TYLENOL-500 [Concomitant]
  5. ZOMETA [Suspect]
     Indication: NEOPLASM MALIGNANT
  6. CHLORHEXIDINE GLUCONATE [Concomitant]
  7. VIACTIV [Concomitant]
     Route: 048
  8. CENTRUM SILVER [Concomitant]
     Route: 048
  9. CLEOCIN HYDROCHLORIDE [Concomitant]
  10. PREVACID [Concomitant]
  11. CLINDAMYCIN HCL [Concomitant]
     Dosage: 300 MG, Q6H
     Route: 048
     Dates: start: 20080522
  12. GLEEVEC [Concomitant]
     Route: 048
  13. INFLUENZA VACCINE [Concomitant]
     Dosage: UNK
     Dates: start: 20071001
  14. AREDIA [Suspect]
     Indication: NEOPLASM MALIGNANT
  15. SYNTHROID [Concomitant]
     Route: 048
  16. CIPROFLOXACIN HYDROCHLORIDE [Concomitant]
  17. ALBUTEROL SULFATE [Concomitant]
     Route: 048
  18. THALOMID [Concomitant]
     Route: 048
  19. ZOFRAN [Concomitant]
     Dosage: 4 MG, Q4H PRN
  20. DECADRON [Concomitant]
     Dosage: 8 MG, UNK
  21. VITAMIN D [Concomitant]
     Route: 048
  22. TENORMIN [Concomitant]
     Dosage: 25 MG, QD
  23. PROTONIX [Concomitant]
     Dosage: 40 MG, UNK
  24. PNEUMOCOCCAL VACCINE [Concomitant]
  25. ONDANSERTRON HYDROCHLORIDE [Concomitant]

REACTIONS (34)
  - INJURY [None]
  - ANHEDONIA [None]
  - SINUSITIS [None]
  - PLEURAL EFFUSION [None]
  - EATING DISORDER [None]
  - PAIN [None]
  - DEFORMITY [None]
  - OCULAR HYPERAEMIA [None]
  - NEOPLASM MALIGNANT [None]
  - BIFIDOBACTERIUM TEST POSITIVE [None]
  - OESOPHAGITIS [None]
  - DIZZINESS [None]
  - BACTEROIDES TEST POSITIVE [None]
  - MENINGIOMA [None]
  - ANXIETY [None]
  - TOOTHACHE [None]
  - LEUKAEMIA [None]
  - HYPERTENSION [None]
  - FACIAL BONES FRACTURE [None]
  - OSTEONECROSIS [None]
  - VISUAL IMPAIRMENT [None]
  - DIPLOPIA [None]
  - MIXED DEAFNESS [None]
  - CELLULITIS ORBITAL [None]
  - RESPIRATORY TRACT OEDEMA [None]
  - STAPHYLOCOCCUS TEST POSITIVE [None]
  - DISABILITY [None]
  - MULTIPLE MYELOMA [None]
  - THYROID CANCER [None]
  - CERUMEN IMPACTION [None]
  - EYE PAIN [None]
  - EYE SWELLING [None]
  - VERTIGO [None]
  - RESPIRATORY FAILURE [None]
